FAERS Safety Report 23032826 (Version 1)
Quarter: 2023Q4

REPORT INFORMATION
  Report Type: Spontaneous
  Country: US (occurrence: US)
  Receive Date: 20231005
  Receipt Date: 20231005
  Transmission Date: 20240110
  Serious: No
  Sender: FDA-Public Use
  Company Number: US-CORIUM, LLC-2023COR000238

PATIENT

DRUGS (1)
  1. ADLARITY [Suspect]
     Active Substance: DONEPEZIL HYDROCHLORIDE
     Indication: Product used for unknown indication
     Dosage: 5 MILLIGRAM, QWEEK
     Route: 065

REACTIONS (1)
  - Dizziness [Unknown]
